FAERS Safety Report 7552964-5 (Version None)
Quarter: 2011Q2

REPORT INFORMATION
  Report Type: 
  Country: None (occurrence: None)
  Receive Date: 20110616
  Receipt Date: 20110606
  Transmission Date: 20111010
  Serious: Yes (Death)
  Sender: FDA-Public Use
  Company Number: FR-GENENTECH-316776

PATIENT
  Sex: Male

DRUGS (30)
  1. ADRIABLASTINA [Concomitant]
     Dosage: 50 MG/M2, UNK
     Dates: start: 20081229
  2. CARDIOXANE [Concomitant]
     Indication: PRODUCT USED FOR UNKNOWN INDICATION
     Dosage: 1000 MG/M2, UNK
     Dates: start: 20081021
  3. CYCLOPHOSPHAMIDE [Concomitant]
     Dosage: 750 MG/M2, UNK
     Dates: start: 20081229
  4. RITUXIMAB [Suspect]
     Indication: LYMPHOMA
     Dosage: UNK
     Route: 042
     Dates: start: 20080919
  5. RITUXIMAB [Suspect]
     Dosage: 375 MG/M2, UNK
     Route: 042
  6. RITUXIMAB [Suspect]
     Dosage: 375 MG/M2, UNK
     Route: 042
     Dates: start: 20081229
  7. ADRIABLASTINA [Concomitant]
     Dosage: 50 MG/M2, UNK
  8. ADRIABLASTINA [Concomitant]
     Dosage: 50 MG/M2, UNK
     Dates: start: 20090130
  9. CARDIOXANE [Concomitant]
     Dosage: 1000 MG/M2, UNK
     Dates: start: 20081229
  10. CARDIOXANE [Concomitant]
     Dosage: 1000 MG/M2, UNK
     Dates: start: 20090130
  11. RITUXIMAB [Suspect]
     Dosage: 375 MG/M2, UNK
     Route: 042
     Dates: start: 20090130
  12. CYCLOPHOSPHAMIDE [Concomitant]
     Dosage: 750 MG/M2, UNK
  13. CYCLOPHOSPHAMIDE [Concomitant]
     Dosage: 750 MG/M2, UNK
     Dates: start: 20081204
  14. RITUXIMAB [Suspect]
     Dosage: 375 MG/M2, UNK
     Route: 042
     Dates: start: 20081021, end: 20090220
  15. RITUXIMAB [Suspect]
     Dosage: 375 MG/M2, UNK
     Route: 042
     Dates: start: 20081204
  16. ONCOVIN [Concomitant]
     Indication: PRODUCT USED FOR UNKNOWN INDICATION
     Dosage: 1.4 MG/M2, UNK
  17. ADRIABLASTINA [Concomitant]
     Dosage: 50 MG/M2, UNK
     Dates: start: 20081204
  18. RITUXIMAB [Suspect]
     Dosage: 375 MG/M2, UNK
     Route: 042
     Dates: start: 20090220
  19. ADRIABLASTINA [Concomitant]
     Dosage: 50 MG/M2, UNK
     Dates: start: 20081021
  20. ONCOVIN [Concomitant]
     Dosage: 1.4 MG/M2, UNK
     Dates: start: 20081204
  21. ADRIABLASTINA [Concomitant]
     Indication: PRODUCT USED FOR UNKNOWN INDICATION
     Dosage: 50 MG/M2, UNK
  22. CARDIOXANE [Concomitant]
     Dosage: 1000 MG/M2, UNK
     Dates: start: 20090220
  23. CYCLOPHOSPHAMIDE [Concomitant]
     Indication: PRODUCT USED FOR UNKNOWN INDICATION
     Dosage: 750 MG/M2, UNK
     Dates: start: 20081021
  24. CYCLOPHOSPHAMIDE [Concomitant]
     Dosage: 750 MG/M2, UNK
     Dates: start: 20090130
  25. CYCLOPHOSPHAMIDE [Concomitant]
     Dosage: 750 MG/M2, UNK
     Dates: start: 20090220
  26. SOLUDECADRON [Concomitant]
     Indication: PRODUCT USED FOR UNKNOWN INDICATION
     Dosage: UNK
  27. IFOSFAMIDE [Concomitant]
     Indication: PRODUCT USED FOR UNKNOWN INDICATION
     Dosage: UNK
  28. ADRIABLASTINA [Concomitant]
     Dosage: 50 MG/M2, UNK
     Dates: start: 20090220
  29. CARDIOXANE [Concomitant]
     Dosage: 1000 MG/M2, UNK
  30. CARDIOXANE [Concomitant]
     Dosage: 1000 MG/M2, UNK
     Dates: start: 20081204

REACTIONS (3)
  - DEATH [None]
  - COUGH [None]
  - CHEST PAIN [None]
